FAERS Safety Report 17928649 (Version 1)
Quarter: 2020Q2

REPORT INFORMATION
  Report Type: Spontaneous
  Country: CA (occurrence: CA)
  Receive Date: 20200623
  Receipt Date: 20200623
  Transmission Date: 20200714
  Serious: Yes (Hospitalization, Other)
  Sender: FDA-Public Use
  Company Number: CA-TEVA-2020-CA-1791459

PATIENT
  Age: 29 Year
  Sex: Female

DRUGS (1)
  1. RANITIDINE. [Suspect]
     Active Substance: RANITIDINE
     Indication: PRODUCT USED FOR UNKNOWN INDICATION
     Route: 048

REACTIONS (7)
  - Cholelithiasis [Unknown]
  - Cholecystectomy [Unknown]
  - Morning sickness [Unknown]
  - Amniorrhoea [Unknown]
  - Gastric disorder [Unknown]
  - Dehydration [Unknown]
  - Exposure during pregnancy [Unknown]
